FAERS Safety Report 15281137 (Version 1)
Quarter: 2018Q3

REPORT INFORMATION
  Report Type: Report from Study
  Country: US (occurrence: US)
  Receive Date: 20180815
  Receipt Date: 20180815
  Transmission Date: 20181010
  Serious: Yes (Hospitalization, Other)
  Sender: FDA-Public Use
  Company Number: US-SA-2018SA141837

PATIENT
  Age: 78 Year
  Sex: Male

DRUGS (1)
  1. DRONEDARONE [Suspect]
     Active Substance: DRONEDARONE
     Indication: CARDIAC DISORDER
     Dosage: 400 MG, BID
     Route: 048

REACTIONS (6)
  - Rash [Recovered/Resolved]
  - Gastrointestinal haemorrhage [Recovered/Resolved]
  - Lung disorder [Recovered/Resolved]
  - Hypersensitivity [Recovered/Resolved]
  - Mitral valve disease [Recovered/Resolved]
  - Lung infection [Recovered/Resolved]
